FAERS Safety Report 6947965-1 (Version None)
Quarter: 2010Q3

REPORT INFORMATION
  Report Type: 
  Country: None (occurrence: None)
  Receive Date: 20100828
  Receipt Date: 20091012
  Transmission Date: 20110219
  Serious: No
  Sender: FDA-Public Use
  Company Number: US-ABBOTT-09P-163-0602595-00

PATIENT
  Sex: Female
  Weight: 68.1 kg

DRUGS (6)
  1. NIASPAN [Suspect]
     Indication: BLOOD CHOLESTEROL
     Route: 048
     Dates: start: 20090901
  2. ASPIRIN [Concomitant]
     Indication: PROPHYLAXIS
     Route: 048
  3. ASPIRIN [Concomitant]
     Indication: FLUSHING
  4. SYMBICORT [Concomitant]
     Indication: ASTHMA
     Route: 055
  5. CADUET [Concomitant]
     Indication: HYPERTENSION
     Dosage: 5/20 DAILY
     Route: 048
  6. MULTI-VITAMIN [Concomitant]
     Indication: VITAMIN SUPPLEMENTATION
     Route: 048

REACTIONS (2)
  - ERYTHEMA [None]
  - PAIN [None]
